FAERS Safety Report 9305999 (Version 1)
Quarter: 2013Q2

REPORT INFORMATION
  Report Type: Spontaneous
  Country: IN (occurrence: None)
  Receive Date: 20130520
  Receipt Date: 20130520
  Transmission Date: 20140414
  Serious: Yes (Other)
  Sender: FDA-Public Use
  Company Number: 2013P1005739

PATIENT
  Age: 40 Year
  Sex: Male

DRUGS (5)
  1. ETHAMBUTOL [Suspect]
     Indication: TUBERCULOSIS
  2. ISONIAZID [Suspect]
     Indication: TUBERCULOSIS
  3. DEXAMETHASONE [Suspect]
     Indication: TUBERCULOSIS
  4. RIFAMPICIN [Suspect]
     Indication: TUBERCULOSIS
  5. PYRAZINAMIDE [Suspect]
     Indication: TUBERCULOSIS

REACTIONS (2)
  - Optic nerve injury [None]
  - Tuberculoma of central nervous system [None]
